FAERS Safety Report 11055891 (Version 2)
Quarter: 2015Q2

REPORT INFORMATION
  Report Type: Spontaneous
  Country: IT (occurrence: IT)
  Receive Date: 20150422
  Receipt Date: 20150617
  Transmission Date: 20150821
  Serious: Yes (Disabling)
  Sender: FDA-Public Use
  Company Number: IT-JNJFOC-20150413421

PATIENT
  Age: 62 Year
  Sex: Male

DRUGS (1)
  1. STELARA [Suspect]
     Active Substance: USTEKINUMAB
     Indication: PSORIASIS
     Dosage: 10 INJECTIONS
     Route: 058
     Dates: start: 20120423, end: 20140901

REACTIONS (1)
  - Rectal adenocarcinoma [Recovered/Resolved with Sequelae]

NARRATIVE: CASE EVENT DATE: 20140901
